FAERS Safety Report 18990052 (Version 1)
Quarter: 2021Q1

REPORT INFORMATION
  Report Type: Spontaneous
  Country: SI (occurrence: SI)
  Receive Date: 20210310
  Receipt Date: 20210310
  Transmission Date: 20210420
  Serious: Yes (Hospitalization, Other)
  Sender: FDA-Public Use
  Company Number: SI-SA-2021SA036093

PATIENT
  Age: 22 Year

DRUGS (2)
  1. LEMTRADA [Suspect]
     Active Substance: ALEMTUZUMAB
     Indication: RELAPSING-REMITTING MULTIPLE SCLEROSIS
     Dosage: 12 MG
     Dates: start: 201902
  2. LEMTRADA [Suspect]
     Active Substance: ALEMTUZUMAB
     Dosage: 12 MG
     Dates: start: 201812

REACTIONS (4)
  - Haemophagocytic lymphohistiocytosis [Unknown]
  - Pyrexia [Not Recovered/Not Resolved]
  - Splenomegaly [Unknown]
  - Hepatomegaly [Unknown]
